FAERS Safety Report 8274222-6 (Version None)
Quarter: 2012Q2

REPORT INFORMATION
  Report Type: 
  Country: None (occurrence: None)
  Receive Date: 20120411
  Receipt Date: 20120402
  Transmission Date: 20120825
  Serious: Yes (Other)
  Sender: FDA-Public Use
  Company Number: JP-ASTRAZENECA-2012SE07848

PATIENT
  Age: 55 Year
  Sex: Female

DRUGS (3)
  1. AMOBAN [Concomitant]
     Route: 048
  2. OMEPRAZOLE [Suspect]
     Indication: GASTROOESOPHAGEAL REFLUX DISEASE
     Route: 048
     Dates: start: 20120125, end: 20120131
  3. LORATADINE [Concomitant]
     Indication: RHINITIS ALLERGIC
     Route: 048
     Dates: start: 20120110

REACTIONS (2)
  - UTERINE LEIOMYOMA [None]
  - GENITAL HAEMORRHAGE [None]
